FAERS Safety Report 5773703-4 (Version None)
Quarter: 2008Q2

REPORT INFORMATION
  Report Type: 
  Country: None (occurrence: None)
  Receive Date: 20080616
  Receipt Date: 20080611
  Transmission Date: 20081010
  Serious: Yes (Disabling)
  Sender: FDA-Public Use
  Company Number: JP-BRISTOL-MYERS SQUIBB COMPANY-14203343

PATIENT
  Age: 48 Year
  Sex: Male

DRUGS (7)
  1. TAXOL [Suspect]
     Indication: NON-SMALL CELL LUNG CANCER
     Dosage: CYCLE 1 DAY 8 GIVEN ON 14-MAR-2008, TOTAL DURATION 2 DAYS.
     Route: 041
     Dates: start: 20080307, end: 20080307
  2. PARAPLATIN [Suspect]
     Indication: NON-SMALL CELL LUNG CANCER
     Route: 041
     Dates: start: 20080307, end: 20080307
  3. RESTAMIN [Suspect]
     Indication: PREMEDICATION
     Route: 048
     Dates: start: 20080307, end: 20080314
  4. GLUCOSE [Suspect]
     Indication: MEDICATION DILUTION
     Route: 041
     Dates: start: 20080307, end: 20080314
  5. DECADRON [Concomitant]
     Dosage: ALSO ADMINISTERED ON 14-MAR-2008
     Route: 041
     Dates: start: 20080307, end: 20080307
  6. ZANTAC [Concomitant]
     Dosage: ALSO ADMINISTERED ON 14-MAR-2008
     Route: 041
     Dates: start: 20080307, end: 20080307
  7. KYTRIL [Concomitant]
     Dosage: ALSO ADMINISTERED ON 14-MAR-2008
     Route: 041
     Dates: start: 20080307, end: 20080307

REACTIONS (2)
  - ASTHENIA [None]
  - PARALYSIS [None]
